FAERS Safety Report 14895561 (Version 1)
Quarter: 2018Q2

REPORT INFORMATION
  Report Type: Spontaneous
  Country: US (occurrence: US)
  Receive Date: 20180427
  Receipt Date: 20180427
  Transmission Date: 20180711
  Serious: Yes (Hospitalization)
  Sender: FDA-Public Use
  Company Number: None

PATIENT
  Age: 67 Year
  Sex: Female
  Weight: 52.3 kg

DRUGS (1)
  1. DEXAMETHASONE. [Suspect]
     Active Substance: DEXAMETHASONE
     Indication: BREAST CANCER
     Route: 042
     Dates: start: 20180122, end: 20180122

REACTIONS (9)
  - Abdominal pain upper [None]
  - Melaena [None]
  - Gastric disorder [None]
  - Haemorrhoids [None]
  - Anaemia [None]
  - Rectal haemorrhage [None]
  - Oesophagitis [None]
  - Haematochezia [None]
  - Upper gastrointestinal haemorrhage [None]

NARRATIVE: CASE EVENT DATE: 20180125
